FAERS Safety Report 12988527 (Version 2)
Quarter: 2016Q4

REPORT INFORMATION
  Report Type: Spontaneous
  Country: US (occurrence: US)
  Receive Date: 20161130
  Receipt Date: 20161207
  Transmission Date: 20170207
  Serious: No
  Sender: FDA-Public Use
  Company Number: US-ACTELION-A-US2016-146074

PATIENT
  Age: 63 Year
  Sex: Male

DRUGS (7)
  1. VALCHLOR [Suspect]
     Active Substance: MECHLORETHAMINE
     Indication: MYCOSIS FUNGOIDES
     Dosage: UNK
     Route: 061
     Dates: start: 20161101
  2. CLOBETASOL [Concomitant]
     Active Substance: CLOBETASOL
  3. DOXAZOSIN [Concomitant]
     Active Substance: DOXAZOSIN\DOXAZOSIN MESYLATE
     Dosage: UNK
  4. MVI [Concomitant]
     Active Substance: VITAMINS
  5. TRIAMCINOLONE [Concomitant]
     Active Substance: TRIAMCINOLONE
  6. SYNTHROID [Concomitant]
     Active Substance: LEVOTHYROXINE SODIUM
  7. ZOLINZA [Concomitant]
     Active Substance: VORINOSTAT
     Dosage: UNK

REACTIONS (4)
  - Skin irritation [Unknown]
  - Application site vesicles [Recovering/Resolving]
  - Application site dryness [Recovering/Resolving]
  - Application site pain [Recovering/Resolving]
